FAERS Safety Report 6096531-1 (Version None)
Quarter: 2009Q1

REPORT INFORMATION
  Report Type: 
  Country: None (occurrence: None)
  Receive Date: 20090225
  Receipt Date: 20090225
  Transmission Date: 20090719
  Serious: No
  Sender: FDA-Public Use
  Company Number: None

PATIENT
  Age: 5 Year
  Sex: Female
  Weight: 22.2263 kg

DRUGS (2)
  1. SINGULAIR [Suspect]
     Indication: COUGH
     Dosage: 5MG DAILY PO
     Route: 048
     Dates: start: 20090214
  2. SINGULAIR [Suspect]
     Indication: SEASONAL ALLERGY
     Dosage: 5MG DAILY PO
     Route: 048
     Dates: start: 20090214

REACTIONS (3)
  - ANGER [None]
  - CRYING [None]
  - MOOD ALTERED [None]
